FAERS Safety Report 8918143 (Version 2)
Quarter: 2012Q4

REPORT INFORMATION
  Report Type: 
  Country: JP (occurrence: JP)
  Receive Date: 20121120
  Receipt Date: 20121205
  Transmission Date: 20130627
  Serious: Yes (Death)
  Sender: FDA-Public Use
  Company Number: JP-BAXTER-2012BAX023760

PATIENT
  Sex: Female

DRUGS (2)
  1. DIANEAL-N PD-2 1.5% [Suspect]
     Indication: RENAL FAILURE CHRONIC
     Dosage: 2.0 Liters/one per day
     Route: 033
     Dates: end: 20121106
  2. EXTRANEAL PD SOLUTION [Suspect]
     Indication: RENAL FAILURE CHRONIC
     Dosage: 1.0 Liter daily
     Route: 033
     Dates: end: 20121106

REACTIONS (1)
  - Cardiac disorder [Fatal]
